FAERS Safety Report 16003358 (Version 2)
Quarter: 2019Q1

REPORT INFORMATION
  Report Type: Spontaneous
  Country: IN (occurrence: IN)
  Receive Date: 20190226
  Receipt Date: 20190227
  Transmission Date: 20190418
  Serious: Yes (Other)
  Sender: FDA-Public Use
  Company Number: IN-CIPLA LTD.-2019IN01161

PATIENT

DRUGS (1)
  1. FENOFIBRATE. [Suspect]
     Active Substance: FENOFIBRATE
     Indication: FAMILIAL HYPERTRIGLYCERIDAEMIA
     Dosage: 10 MILLIGRAM/KILOGRAM, PER DAY
     Route: 065

REACTIONS (1)
  - Therapy non-responder [Unknown]
